FAERS Safety Report 11547609 (Version 1)
Quarter: 2015Q3

REPORT INFORMATION
  Report Type: Spontaneous
  Country: IE (occurrence: IE)
  Receive Date: 20150924
  Receipt Date: 20150924
  Transmission Date: 20151125
  Serious: Yes (Congenital Anomaly)
  Sender: FDA-Public Use
  Company Number: IE-UNICHEM LABORATORIES LIMITED-UCM201509-000809

PATIENT
  Sex: Female
  Weight: 3.74 kg

DRUGS (3)
  1. LEVETIRACETAM. [Suspect]
     Active Substance: LEVETIRACETAM
  2. LAMOTRIGINE. [Suspect]
     Active Substance: LAMOTRIGINE
  3. DIVALPROEX SODIUM. [Suspect]
     Active Substance: DIVALPROEX SODIUM

REACTIONS (6)
  - Foetal exposure during pregnancy [Unknown]
  - Atrial septal defect [Unknown]
  - Patent ductus arteriosus [Unknown]
  - Dysmorphism [Unknown]
  - Neonatal respiratory distress syndrome [Unknown]
  - Foetal anticonvulsant syndrome [Unknown]
